FAERS Safety Report 23221752 (Version 2)
Quarter: 2023Q4

REPORT INFORMATION
  Report Type: Spontaneous
  Country: US (occurrence: US)
  Receive Date: 20231123
  Receipt Date: 20231220
  Transmission Date: 20240110
  Serious: No
  Sender: FDA-Public Use
  Company Number: US-LEADINGPHARMA-US-2023LEASPO00359

PATIENT
  Age: 58 Year
  Sex: Female
  Weight: 105 kg

DRUGS (2)
  1. LORAZEPAM [Suspect]
     Active Substance: LORAZEPAM
     Indication: Anxiety
     Route: 048
     Dates: start: 20231013, end: 20231105
  2. LEVOTHYROXINE [Concomitant]
     Active Substance: LEVOTHYROXINE
     Indication: Product used for unknown indication
     Route: 065

REACTIONS (7)
  - Heart rate irregular [Recovered/Resolved]
  - Extrasystoles [Recovered/Resolved]
  - Palpitations [Recovered/Resolved]
  - Dysgeusia [Unknown]
  - Product taste abnormal [Unknown]
  - Product substitution issue [Unknown]
  - Wrong technique in product usage process [Unknown]

NARRATIVE: CASE EVENT DATE: 20231013
